FAERS Safety Report 11304174 (Version 1)
Quarter: 2015Q3

REPORT INFORMATION
  Report Type: Spontaneous
  Country: US (occurrence: US)
  Receive Date: 20150723
  Receipt Date: 20150723
  Transmission Date: 20151125
  Serious: No
  Sender: FDA-Public Use
  Company Number: US-JNJFOC-20150506415

PATIENT
  Age: 17 Year
  Sex: Female
  Weight: 54.43 kg

DRUGS (1)
  1. CHILDRENS MOTRIN COLD [Suspect]
     Active Substance: IBUPROFEN\PSEUDOEPHEDRINE HYDROCHLORIDE
     Indication: PYREXIA
     Dosage: 1 TEASPOON
     Route: 048
     Dates: start: 20150507, end: 20150508

REACTIONS (1)
  - Drug administered to patient of inappropriate age [Unknown]
